FAERS Safety Report 23429511 (Version 1)
Quarter: 2024Q1

REPORT INFORMATION
  Report Type: Spontaneous
  Country: GB (occurrence: GB)
  Receive Date: 20240122
  Receipt Date: 20240122
  Transmission Date: 20240410
  Serious: Yes (Hospitalization)
  Sender: FDA-Public Use
  Company Number: None

PATIENT
  Age: 51 Year

DRUGS (3)
  1. VORICONAZOLE [Suspect]
     Active Substance: VORICONAZOLE
     Dosage: UNK
  2. AMPHOTERICIN B [Suspect]
     Active Substance: AMPHOTERICIN B
     Dosage: UNK
  3. BIKTARVY [Suspect]
     Active Substance: BICTEGRAVIR SODIUM\EMTRICITABINE\TENOFOVIR ALAFENAMIDE FUMARATE
     Dosage: UNK

REACTIONS (3)
  - Mouth ulceration [Not Recovered/Not Resolved]
  - Swollen tongue [Recovering/Resolving]
  - Skin abrasion [Recovered/Resolved]
